FAERS Safety Report 6106836-3 (Version None)
Quarter: 2009Q1

REPORT INFORMATION
  Report Type: 
  Country: None (occurrence: None)
  Receive Date: 20090304
  Receipt Date: 20090219
  Transmission Date: 20090719
  Serious: Yes (Other)
  Sender: FDA-Public Use
  Company Number: GXKR2009AU02374

PATIENT
  Age: 65 Year
  Sex: Female

DRUGS (5)
  1. ACETAMINOPHEN [Suspect]
     Indication: PYREXIA
     Dosage: 1 G
  2. CALCITRIOL [Concomitant]
  3. CALCIUM CARBONATE (CALCIUM CARBONATE) [Concomitant]
  4. FLICLAZIDE (GLICLAZIDE) [Concomitant]
  5. FLOXACILLIN SODIUM [Concomitant]

REACTIONS (2)
  - ADVERSE REACTION [None]
  - ANAPHYLACTOID REACTION [None]
